FAERS Safety Report 8296554-8 (Version None)
Quarter: 2012Q2

REPORT INFORMATION
  Report Type: 
  Country: None (occurrence: None)
  Receive Date: 20120418
  Receipt Date: 20120410
  Transmission Date: 20120825
  Serious: Yes (Hospitalization)
  Sender: FDA-Public Use
  Company Number: TR-ROCHE-GNE319954

PATIENT
  Age: 66 Year
  Sex: Female

DRUGS (1)
  1. XOLAIR [Suspect]
     Indication: ASTHMA
     Route: 065
     Dates: start: 20110308, end: 20110323

REACTIONS (11)
  - CARDIAC FAILURE [None]
  - DECREASED APPETITE [None]
  - MYOCARDITIS [None]
  - MITRAL VALVE INCOMPETENCE [None]
  - ALLERGIC GRANULOMATOUS ANGIITIS [None]
  - PULMONARY OEDEMA [None]
  - FATIGUE [None]
  - ABDOMINAL DISCOMFORT [None]
  - PAIN IN EXTREMITY [None]
  - CONGESTIVE CARDIOMYOPATHY [None]
  - COUGH [None]
